FAERS Safety Report 25252745 (Version 3)
Quarter: 2025Q3

REPORT INFORMATION
  Report Type: Report from Study
  Country: US (occurrence: US)
  Receive Date: 20250429
  Receipt Date: 20250722
  Transmission Date: 20251020
  Serious: Yes (Hospitalization, Other)
  Sender: ABBVIE
  Company Number: US-ABBVIE-6244453

PATIENT
  Age: 55 Year
  Sex: Female
  Weight: 128 kg

DRUGS (6)
  1. SKYRIZI [Suspect]
     Active Substance: RISANKIZUMAB-RZAA
     Indication: Colitis ulcerative
     Dosage: DOSE: 360MG/2.4ML
     Route: 058
     Dates: start: 20250213
  2. SKYRIZI [Suspect]
     Active Substance: RISANKIZUMAB-RZAA
     Dosage: DOSE: 360MG/2.4ML
     Route: 058
     Dates: start: 202501, end: 202501
  3. OMEPRAZOLE [Concomitant]
     Active Substance: OMEPRAZOLE
     Indication: Gastrooesophageal reflux disease
     Route: 048
  4. COLESTIPOL [Concomitant]
     Active Substance: COLESTIPOL
     Indication: Diarrhoea
     Dosage: 2 GM TABLET
     Route: 048
  5. BENTYL [Concomitant]
     Active Substance: DICYCLOMINE HYDROCHLORIDE
     Indication: Diarrhoea
     Dosage: PRN
     Route: 048
  6. ZOFRAN [Concomitant]
     Active Substance: ONDANSETRON HYDROCHLORIDE
     Indication: Nausea
     Route: 048

REACTIONS (13)
  - Stomal hernia [Recovered/Resolved]
  - Procedural complication [Not Recovered/Not Resolved]
  - Stoma site pain [Recovered/Resolved]
  - Stoma site reaction [Recovered/Resolved]
  - Gastrointestinal stoma output decreased [Recovered/Resolved]
  - Stoma complication [Unknown]
  - Stoma site reaction [Recovered/Resolved]
  - Stoma creation [Unknown]
  - Stoma site reaction [Unknown]
  - Mucous stools [Not Recovered/Not Resolved]
  - Stoma site hypergranulation [Not Recovered/Not Resolved]
  - Nausea [Recovered/Resolved]
  - Abdominal pain [Recovered/Resolved]

NARRATIVE: CASE EVENT DATE: 20250101
